FAERS Safety Report 9311977 (Version 5)
Quarter: 2013Q4

REPORT INFORMATION
  Report Type: Report from Study
  Country: DE (occurrence: DE)
  Receive Date: 20130528
  Receipt Date: 20131212
  Transmission Date: 20140711
  Serious: Yes (Death, Life-Threatening, Hospitalization, Other)
  Sender: FDA-Public Use
  Company Number: PHHY2013DE052033

PATIENT
  Sex: Female
  Weight: 85 kg

DRUGS (16)
  1. AFINITOR [Suspect]
     Indication: BREAST CANCER METASTATIC
     Dosage: 10 MG, QD
     Route: 048
     Dates: start: 20130402, end: 20130515
  2. AFINITOR [Suspect]
     Dosage: 10 MG, EVERY TWO DAYS
     Route: 048
     Dates: start: 20130516, end: 20130520
  3. EXEMESTANE [Suspect]
     Indication: BREAST CANCER METASTATIC
     Dosage: 25 MG, QD
     Route: 048
     Dates: start: 20130402, end: 20130520
  4. BISPHOSPHONATES [Concomitant]
  5. OBSIDAN [Concomitant]
     Dosage: 40 MG, BID
  6. CITALOPRAM [Concomitant]
     Dosage: 30 MG, QD
  7. LYRICA [Concomitant]
     Dosage: 225 MG, BID
  8. PANTOZOL [Concomitant]
     Dosage: 20 MG, QD
  9. PERENTEROL [Concomitant]
  10. MORPHINE [Concomitant]
  11. METHIZOL [Concomitant]
     Dosage: 5 MG, QD
  12. BONDRONAT [Concomitant]
     Route: 042
  13. ZOLADEX [Concomitant]
  14. FASLODEX [Concomitant]
     Dosage: 500 MG, 2 PER MONTH
  15. SEVREDOL [Concomitant]
     Dosage: 20 MG, UPTO 4 TIMES DAILY
  16. AMITRIPTYLINE [Concomitant]
     Dosage: 100 MG, QD

REACTIONS (5)
  - Left ventricular failure [Fatal]
  - Atrial fibrillation [Fatal]
  - Dyspnoea [Fatal]
  - Hypertension [Fatal]
  - Stomatitis [Not Recovered/Not Resolved]
